FAERS Safety Report 19920044 (Version 1)
Quarter: 2021Q4

REPORT INFORMATION
  Report Type: Report from Study
  Country: SE (occurrence: SE)
  Receive Date: 20211005
  Receipt Date: 20211005
  Transmission Date: 20220303
  Serious: Yes (Hospitalization, Other)
  Sender: FDA-Public Use
  Company Number: SE-TAKEDA-2021TUS061133

PATIENT
  Age: 68 Year
  Sex: Male

DRUGS (8)
  1. TEDUGLUTIDE [Suspect]
     Active Substance: TEDUGLUTIDE
     Indication: Short-bowel syndrome
     Dosage: 2.8 MILLIGRAM, QD
     Route: 065
     Dates: start: 20200312
  2. TEDUGLUTIDE [Suspect]
     Active Substance: TEDUGLUTIDE
     Indication: Short-bowel syndrome
     Dosage: 2.8 MILLIGRAM, QD
     Route: 065
     Dates: start: 20200312
  3. TEDUGLUTIDE [Suspect]
     Active Substance: TEDUGLUTIDE
     Indication: Short-bowel syndrome
     Dosage: 2.8 MILLIGRAM, QD
     Route: 065
     Dates: start: 20200312
  4. TEDUGLUTIDE [Suspect]
     Active Substance: TEDUGLUTIDE
     Indication: Short-bowel syndrome
     Dosage: 2.8 MILLIGRAM, QD
     Route: 065
     Dates: start: 20200312
  5. PROPIOMAZINE [Concomitant]
     Active Substance: PROPIOMAZINE
     Indication: Sleep disorder
     Dosage: 25 MILLIGRAM, PRN
     Route: 048
     Dates: start: 20181128
  6. ZOLPIDEM [Concomitant]
     Active Substance: ZOLPIDEM TARTRATE
     Indication: Sleep disorder
     Dosage: 5 MILLIGRAM, PRN
     Route: 048
     Dates: start: 20180408, end: 20181128
  7. INFLECTRA [Concomitant]
     Active Substance: INFLIXIMAB-DYYB
     Indication: Crohn^s disease
     Dosage: 100 MILLIGRAM, Q6WEEKS
     Route: 042
     Dates: start: 20180124
  8. Kolestyramin Alternova [Concomitant]
     Indication: Diarrhoea
     Dosage: 4 GRAM, QD
     Route: 048
     Dates: start: 20190220

REACTIONS (1)
  - Campylobacter infection [Recovered/Resolved]

NARRATIVE: CASE EVENT DATE: 20210710
